FAERS Safety Report 11645059 (Version 1)
Quarter: 2015Q4

REPORT INFORMATION
  Report Type: Spontaneous
  Country: US (occurrence: US)
  Receive Date: 20151020
  Receipt Date: 20151020
  Transmission Date: 20160304
  Serious: No
  Sender: FDA-Public Use
  Company Number: CHPA2015US010212

PATIENT
  Sex: Male

DRUGS (4)
  1. VOLTAREN [Suspect]
     Active Substance: DICLOFENAC SODIUM
     Indication: GOUT
     Dosage: UNK, 3 TO 4 TIMES A DAY
     Route: 061
     Dates: start: 2014
  2. VOLTAREN [Suspect]
     Active Substance: DICLOFENAC SODIUM
     Indication: BONE PAIN
  3. VOLTAREN [Suspect]
     Active Substance: DICLOFENAC SODIUM
     Indication: SWELLING
  4. VOLTAREN [Suspect]
     Active Substance: DICLOFENAC SODIUM
     Indication: PAIN

REACTIONS (10)
  - Expired product administered [Unknown]
  - Drug ineffective for unapproved indication [Unknown]
  - Swelling [Recovering/Resolving]
  - Abasia [Recovering/Resolving]
  - Pain [Recovering/Resolving]
  - Inappropriate schedule of drug administration [Unknown]
  - Wrong technique in product usage process [Unknown]
  - Gout [Recovering/Resolving]
  - Product use issue [Unknown]
  - Bone pain [Recovering/Resolving]

NARRATIVE: CASE EVENT DATE: 2014
